FAERS Safety Report 8874968 (Version 1)
Quarter: 2012Q4

REPORT INFORMATION
  Report Type: 
  Country: US (occurrence: US)
  Receive Date: 20121029
  Receipt Date: 20121029
  Transmission Date: 20130627
  Serious: No
  Sender: FDA-Public Use
  Company Number: US-009507513-1210USA012890

PATIENT
  Sex: Female
  Weight: 58.96 kg

DRUGS (1)
  1. IMPLANON [Suspect]
     Indication: CONTRACEPTION
     Dosage: 1 DF, every 3 years
     Dates: start: 201102

REACTIONS (2)
  - Vitamin D deficiency [Not Recovered/Not Resolved]
  - Weight increased [Not Recovered/Not Resolved]
